FAERS Safety Report 7517925-0 (Version None)
Quarter: 2011Q2

REPORT INFORMATION
  Report Type: 
  Country: None (occurrence: None)
  Receive Date: 20110523
  Receipt Date: 20110512
  Transmission Date: 20111010
  Serious: Yes (Hospitalization, Other)
  Sender: FDA-Public Use
  Company Number: ACO_22932_2010

PATIENT
  Age: 57 Year
  Sex: Male

DRUGS (1)
  1. AMPYRA [Suspect]
     Indication: PRODUCT USED FOR UNKNOWN INDICATION
     Dosage: 10 MG, BID, ORAL
     Route: 048
     Dates: start: 20100715, end: 20100916

REACTIONS (5)
  - CHOKING [None]
  - LOSS OF CONSCIOUSNESS [None]
  - CARDIAC ARREST [None]
  - DRUG INEFFECTIVE [None]
  - CONVULSION [None]
